FAERS Safety Report 6460292 (Version 2)
Quarter: 2020Q3

REPORT INFORMATION
  Report Type: Spontaneous
  Country: BE (occurrence: BE)
  Receive Date: 20071026
  Receipt Date: 20200710
  Transmission Date: 20201103
  Serious: Yes (Death, Life-Threatening)
  Sender: FDA-Public Use
  Company Number: GXKR2007BE08907

PATIENT
  Age: 28 Year
  Sex: Male

DRUGS (2)
  1. TRAMADOL. [Suspect]
     Active Substance: TRAMADOL
     Indication: ABDOMINAL PAIN
     Dosage: UNK
     Route: 065
  2. BENZODIAZEPINE DERIVATIVES [Suspect]
     Active Substance: BENZODIAZEPINE
     Indication: PRODUCT USED FOR UNKNOWN INDICATION
     Dosage: UNK
     Route: 048

REACTIONS (20)
  - Overdose [Fatal]
  - Acidosis [Not Recovered/Not Resolved]
  - Cardiac arrest [Fatal]
  - Coma scale abnormal [Fatal]
  - Pupillary reflex impaired [Fatal]
  - Acute kidney injury [Fatal]
  - Acute hepatic failure [Fatal]
  - Pulmonary oedema [Unknown]
  - Areflexia [Unknown]
  - Sinus tachycardia [Fatal]
  - Hypoglycaemia [Fatal]
  - Multiple organ dysfunction syndrome [Fatal]
  - Metabolic acidosis [Fatal]
  - Gastrointestinal haemorrhage [Unknown]
  - Apnoea [Fatal]
  - Hepatic steatosis [Fatal]
  - Coagulopathy [Fatal]
  - Lung consolidation [Fatal]
  - Hepatic necrosis [Fatal]
  - Poisoning [Fatal]
